FAERS Safety Report 21621783 (Version 1)
Quarter: 2022Q4

REPORT INFORMATION
  Report Type: Spontaneous
  Country: US (occurrence: US)
  Receive Date: 20221121
  Receipt Date: 20221121
  Transmission Date: 20230112
  Serious: Yes (Other)
  Sender: FDA-Public Use
  Company Number: US-PROCTER_AND_GAMBLE-GS22111542

PATIENT

DRUGS (1)
  1. CREST 3D WHITE ENAMEL RENEWAL [Suspect]
     Active Substance: SODIUM FLUORIDE
     Route: 002

REACTIONS (1)
  - Epilepsy [Not Recovered/Not Resolved]
